FAERS Safety Report 21631546 (Version 1)
Quarter: 2022Q4

REPORT INFORMATION
  Report Type: Spontaneous
  Country: CN (occurrence: CN)
  Receive Date: 20221123
  Receipt Date: 20221123
  Transmission Date: 20230112
  Serious: Yes (Hospitalization, Other)
  Sender: FDA-Public Use
  Company Number: CN-MICRO LABS LIMITED-ML2022-05765

PATIENT
  Age: 7 Year
  Sex: Female

DRUGS (4)
  1. LEVETIRACETAM [Suspect]
     Active Substance: LEVETIRACETAM
     Indication: Petit mal epilepsy
     Dosage: AT A MAXIMUM DOSE OF 37.50 MG/KG/DAY
  2. VALPROIC ACID [Suspect]
     Active Substance: VALPROIC ACID
     Indication: Petit mal epilepsy
     Dosage: MAXIMUM DOSE OF 31.25 MG/KG/DAY
  3. LAMOTRIGINE [Suspect]
     Active Substance: LAMOTRIGINE
     Indication: Petit mal epilepsy
     Dosage: MAXIMUM DOSE OF 6.25 MG/KG/DAY
  4. PERAMPANEL [Suspect]
     Active Substance: PERAMPANEL
     Indication: Petit mal epilepsy
     Dosage: (2 MG/D)

REACTIONS (1)
  - Drug ineffective [Unknown]
